FAERS Safety Report 21068395 (Version 1)
Quarter: 2022Q3

REPORT INFORMATION
  Report Type: Spontaneous
  Country: US (occurrence: None)
  Receive Date: 20220711
  Receipt Date: 20220711
  Transmission Date: 20221026
  Serious: Yes (Disabling, Other)
  Sender: FDA-Public Use
  Company Number: None

PATIENT
  Age: 71 Year
  Sex: Female
  Weight: 72 kg

DRUGS (1)
  1. EVUSHELD [Suspect]
     Active Substance: CILGAVIMAB\TIXAGEVIMAB
     Indication: COVID-19 prophylaxis
     Route: 030
     Dates: start: 20220708

REACTIONS (6)
  - Pruritus [None]
  - Fatigue [None]
  - Dyspnoea [None]
  - Joint swelling [None]
  - Peripheral swelling [None]
  - Heart rate increased [None]

NARRATIVE: CASE EVENT DATE: 20220709
